APPROVED DRUG PRODUCT: KLOXXADO
Active Ingredient: NALOXONE HYDROCHLORIDE
Strength: 8MG/SPRAY
Dosage Form/Route: SPRAY;NASAL
Application: N212045 | Product #001
Applicant: HIKMA PHARMACEUTICALS USA INC
Approved: Apr 29, 2021 | RLD: Yes | RS: Yes | Type: RX

PATENTS:
Patent 11617713 | Expires: Aug 26, 2034
Patent 11628139 | Expires: Aug 26, 2034
Patent 10973814 | Expires: Aug 26, 2034
Patent 10722510 | Expires: Aug 26, 2034
Patent 11975096 | Expires: Aug 26, 2034
Patent 12414915 | Expires: Aug 26, 2034
Patent 11135155 | Expires: Aug 26, 2034